FAERS Safety Report 8524392-7 (Version None)
Quarter: 2012Q3

REPORT INFORMATION
  Report Type: 
  Country: None (occurrence: None)
  Receive Date: 20120716
  Receipt Date: 20120716
  Transmission Date: 20120928
  Serious: Yes (Hospitalization)
  Sender: FDA-Public Use
  Company Number: None

PATIENT
  Age: 64 Year
  Sex: Male
  Weight: 136.3 kg

DRUGS (1)
  1. DEXAMETHASONE [Suspect]
     Dosage: 40 MG EVERY DAY PO
     Route: 048
     Dates: start: 20120307, end: 20120309

REACTIONS (1)
  - OEDEMA PERIPHERAL [None]
